FAERS Safety Report 17286600 (Version 1)
Quarter: 2020Q1

REPORT INFORMATION
  Report Type: Spontaneous
  Country: US (occurrence: US)
  Receive Date: 20191231
  Receipt Date: 20191231
  Transmission Date: 20200409
  Serious: Yes (Hospitalization)
  Sender: FDA-Public Use
  Company Number: None

PATIENT
  Sex: Male

DRUGS (6)
  1. DRONABINOL. [Concomitant]
     Active Substance: DRONABINOL
  2. ATORVASTATIN [Concomitant]
     Active Substance: ATORVASTATIN
  3. IRBESARTAN. [Concomitant]
     Active Substance: IRBESARTAN
  4. ESBRIET [Suspect]
     Active Substance: PIRFENIDONE
     Indication: IDIOPATHIC PULMONARY FIBROSIS
     Route: 048
     Dates: start: 20190809
  5. HYDROCOVAPAP [Concomitant]
  6. IRBESAR/HCTZ [Concomitant]

REACTIONS (2)
  - Therapy cessation [None]
  - Hospitalisation [None]
